FAERS Safety Report 5424015-X (Version None)
Quarter: 2007Q3

REPORT INFORMATION
  Report Type: 
  Country: None (occurrence: None)
  Receive Date: 20070727
  Receipt Date: 20061005
  Transmission Date: 20080115
  Serious: Yes (Hospitalization)
  Sender: FDA-Public Use
  Company Number: THYM-11095

PATIENT
  Age: 61 Year
  Sex: Male
  Weight: 80 kg

DRUGS (7)
  1. THYMOGLOBULIN [Suspect]
     Indication: LIVER TRANSPLANT
     Dosage: 1.5 MG/KG QOD IV
     Route: 042
     Dates: start: 20050811
  2. METHYLPREDNISOLONE 16MG TAB [Concomitant]
  3. PROGRAF [Concomitant]
  4. CELLCEPT [Concomitant]
  5. BACTRIM [Concomitant]
  6. COZAAR [Concomitant]
  7. AMLODIPINE BESYLATE [Concomitant]

REACTIONS (2)
  - ANASTOMOTIC STENOSIS [None]
  - PANCREATITIS ACUTE [None]
